FAERS Safety Report 10255486 (Version 1)
Quarter: 2014Q2

REPORT INFORMATION
  Report Type: Spontaneous
  Country: US (occurrence: None)
  Receive Date: 20140522
  Receipt Date: 20140522
  Transmission Date: 20141212
  Serious: No
  Sender: FDA-Public Use
  Company Number: 1000065920

PATIENT
  Age: 83 Year
  Sex: Female

DRUGS (4)
  1. TUDORZA PRESSAIR (ACLIDINIUM BROMIDE) (400 MICROGRAM, POWDER) [Suspect]
     Indication: BRONCHIECTASIS
     Dosage: 400 MCG (400 MCG, 1 IN 1 D,  01/ 2014 - ONGOING THERAPY DATES
     Dates: start: 201401
  2. GLIPIZIDE [Concomitant]
  3. HYDROCHLOROTHIAZIDE [Concomitant]
  4. VITAMINS NOS [Concomitant]

REACTIONS (2)
  - Fatigue [None]
  - Off label use [None]
